FAERS Safety Report 8983754 (Version 3)
Quarter: 2013Q1

REPORT INFORMATION
  Report Type: Report from Study
  Country: AU (occurrence: AU)
  Receive Date: 20121224
  Receipt Date: 20130208
  Transmission Date: 20140127
  Serious: Yes (Other)
  Sender: FDA-Public Use
  Company Number: AU-ROCHE-1168423

PATIENT
  Age: 63 Year
  Sex: Male

DRUGS (6)
  1. ACTEMRA [Suspect]
     Indication: RHEUMATOID ARTHRITIS
     Route: 042
     Dates: start: 20101115
  2. ACTEMRA [Suspect]
     Route: 065
     Dates: start: 201005
  3. ACTEMRA [Suspect]
     Route: 042
     Dates: start: 20111115
  4. PREDNISOLONE [Concomitant]
  5. ENDONE [Concomitant]
  6. PANAMAX [Concomitant]

REACTIONS (2)
  - Arthralgia [Not Recovered/Not Resolved]
  - Back pain [Not Recovered/Not Resolved]
